FAERS Safety Report 5009314-8 (Version None)
Quarter: 2006Q2

REPORT INFORMATION
  Report Type: 
  Country: None (occurrence: None)
  Receive Date: 20060522
  Receipt Date: 20060511
  Transmission Date: 20061013
  Serious: Yes (Death)
  Sender: FDA-Public Use
  Company Number: 2006BI006842

PATIENT
  Sex: Female
  Weight: 31.7518 kg

DRUGS (1)
  1. AVONEX [Suspect]
     Indication: MULTIPLE SCLEROSIS
     Dosage: 30 UG;QW;IM
     Route: 030
     Dates: start: 20020101, end: 20030101

REACTIONS (3)
  - ASTHENIA [None]
  - DISEASE PROGRESSION [None]
  - MULTIPLE SCLEROSIS [None]
